FAERS Safety Report 16347163 (Version 1)
Quarter: 2019Q2

REPORT INFORMATION
  Report Type: Other
  Country: CA (occurrence: CA)
  Receive Date: 20190523
  Receipt Date: 20190523
  Transmission Date: 20190711
  Serious: Yes (Hospitalization, Other)
  Sender: FDA-Public Use
  Company Number: CA-APOTEX-2019AP014329

PATIENT
  Age: 60 Year
  Sex: Male

DRUGS (4)
  1. COSENTYX [Suspect]
     Active Substance: SECUKINUMAB
     Dosage: 300.0 MG, Q.M.T.
     Route: 058
  2. COSENTYX [Suspect]
     Active Substance: SECUKINUMAB
     Indication: PSORIASIS
     Dosage: UNK UNK, Q.WK.
     Route: 058
  3. CYCLOSPORINE. [Suspect]
     Active Substance: CYCLOSPORINE
     Indication: PRODUCT USED FOR UNKNOWN INDICATION
     Dosage: UNK
     Route: 065
  4. GABAPENTIN. [Concomitant]
     Active Substance: GABAPENTIN
     Indication: PRODUCT USED FOR UNKNOWN INDICATION
     Dosage: 1 DF, TID
     Route: 065

REACTIONS (16)
  - Varicose vein [Recovering/Resolving]
  - Arrhythmia [Recovering/Resolving]
  - Localised infection [Recovering/Resolving]
  - Fluid retention [Recovering/Resolving]
  - Heart rate irregular [Recovering/Resolving]
  - Oedema [Recovering/Resolving]
  - Pain [Recovering/Resolving]
  - Cellulitis [Recovering/Resolving]
  - Clostridium difficile infection [Recovering/Resolving]
  - Productive cough [Recovering/Resolving]
  - Pulmonary congestion [Recovering/Resolving]
  - Mobility decreased [Recovering/Resolving]
  - Obesity [Recovering/Resolving]
  - Peripheral venous disease [Recovering/Resolving]
  - Dyspnoea [Recovering/Resolving]
  - Osteoarthritis [Recovering/Resolving]
